FAERS Safety Report 9252059 (Version 1)
Quarter: 2013Q2

REPORT INFORMATION
  Report Type: Report from Study
  Country: GB (occurrence: GB)
  Receive Date: 20130424
  Receipt Date: 20130424
  Transmission Date: 20140414
  Serious: Yes (Hospitalization)
  Sender: FDA-Public Use
  Company Number: GB-JNJFOC-20130410613

PATIENT
  Age: 43 Year
  Sex: Male

DRUGS (15)
  1. USTEKINUMAB [Suspect]
     Indication: PSORIASIS
     Route: 058
     Dates: start: 20121029, end: 20121129
  2. WARFARIN [Concomitant]
     Dates: start: 20120910
  3. CYCLIZINE [Concomitant]
     Dates: start: 20120910
  4. SERTRALINE [Concomitant]
     Dates: start: 20120910
  5. RISPERIDONE [Concomitant]
     Dates: start: 20120910
  6. OXYCODONE [Concomitant]
     Dates: start: 20120910
  7. LANSOPRAZOLE [Concomitant]
     Dates: start: 20120910
  8. LORAZEPAM [Concomitant]
     Dates: start: 20120910
  9. PARACETAMOL [Concomitant]
     Dates: start: 20120910
  10. HALOPERIDOL [Concomitant]
     Dates: start: 20120910
  11. DOCUSATE SODIUM [Concomitant]
     Dates: start: 20120910
  12. ALFACALCIDOL [Concomitant]
     Dates: start: 20120910
  13. CALCICHEW D3 [Concomitant]
     Dates: start: 20120910
  14. SODIUM BICARBONATE [Concomitant]
     Dates: start: 20120910
  15. ARANESP [Concomitant]
     Dates: start: 20120910

REACTIONS (3)
  - Urinary tract infection [Recovered/Resolved]
  - Psoriasis [Recovered/Resolved]
  - Blood sodium decreased [Unknown]
